FAERS Safety Report 4667953-8 (Version None)
Quarter: 2005Q2

REPORT INFORMATION
  Report Type: 
  Country: None (occurrence: None)
  Receive Date: 20050520
  Receipt Date: 20050509
  Transmission Date: 20051028
  Serious: Yes (Hospitalization)
  Sender: FDA-Public Use
  Company Number: 2005SE02769

PATIENT
  Age: 86 Year
  Sex: Female

DRUGS (4)
  1. AMIAS [Suspect]
     Indication: CARDIAC FAILURE
     Route: 048
  2. AMIAS [Suspect]
     Route: 048
  3. AMLODIPINE [Concomitant]
     Route: 048
  4. BENDROFLUAZIDE [Concomitant]
     Route: 048

REACTIONS (2)
  - IDIOPATHIC THROMBOCYTOPENIC PURPURA [None]
  - MOUTH HAEMORRHAGE [None]
